FAERS Safety Report 10098298 (Version 1)
Quarter: 2014Q2

REPORT INFORMATION
  Report Type: Spontaneous
  Country: BR (occurrence: BR)
  Receive Date: 20140423
  Receipt Date: 20140423
  Transmission Date: 20141212
  Serious: Yes (Hospitalization, Other)
  Sender: FDA-Public Use
  Company Number: BR-ASTRAZENECA-2014SE26462

PATIENT
  Age: 82 Year
  Sex: Male
  Weight: 73 kg

DRUGS (3)
  1. ATACAND [Suspect]
     Indication: BLOOD PRESSURE ABNORMAL
     Route: 048
  2. ATACAND [Suspect]
     Indication: CARDIAC PACEMAKER INSERTION
     Route: 048
  3. UNSPECIFIED DRUGS [Concomitant]
     Dosage: FOR MANY YEARS

REACTIONS (2)
  - Aortic aneurysm [Recovered/Resolved]
  - Anaemia [Recovered/Resolved]
